FAERS Safety Report 4826261-2 (Version None)
Quarter: 2005Q4

REPORT INFORMATION
  Report Type: 
  Country: None (occurrence: None)
  Receive Date: 20051014
  Receipt Date: 20050726
  Transmission Date: 20060501
  Serious: No
  Sender: FDA-Public Use
  Company Number: 2005SP002093

PATIENT
  Age: 87 Year
  Sex: Male

DRUGS (7)
  1. LUNESTA [Suspect]
     Indication: INSOMNIA
     Dosage: 3 MG;HS;ORAL, 2 MG;HS;ORAL
     Route: 048
     Dates: start: 20050701, end: 20050101
  2. LUNESTA [Suspect]
     Indication: INSOMNIA
     Dosage: 3 MG;HS;ORAL, 2 MG;HS;ORAL
     Route: 048
     Dates: start: 20050101
  3. . [Concomitant]
  4. ATORVASTATIN CALCIUM [Concomitant]
  5. INSULIN [Concomitant]
  6. DIURETICS [Concomitant]
  7. QUININE [Concomitant]

REACTIONS (1)
  - DYSGEUSIA [None]
